FAERS Safety Report 9127607 (Version 1)
Quarter: 2013Q1

REPORT INFORMATION
  Report Type: Spontaneous
  Country: US (occurrence: US)
  Receive Date: 20130228
  Receipt Date: 20130228
  Transmission Date: 20140127
  Serious: No
  Sender: FDA-Public Use
  Company Number: US-GLAXOSMITHKLINE-A0987458A

PATIENT
  Age: 27 Year
  Sex: Female
  Weight: 80.5 kg

DRUGS (1)
  1. LAMICTAL [Suspect]
     Indication: PRODUCT USED FOR UNKNOWN INDICATION
     Dosage: 100MG UNKNOWN
     Route: 048
     Dates: start: 20120418

REACTIONS (2)
  - Dysgeusia [Recovered/Resolved]
  - Product quality issue [Unknown]
